FAERS Safety Report 20725337 (Version 1)
Quarter: 2022Q2

REPORT INFORMATION
  Report Type: Spontaneous
  Country: PT (occurrence: PT)
  Receive Date: 20220419
  Receipt Date: 20220419
  Transmission Date: 20220721
  Serious: Yes (Death, Other)
  Sender: FDA-Public Use
  Company Number: PT-NOVARTISPH-NVSC2022PT089970

PATIENT

DRUGS (9)
  1. ESOMEPRAZOLE [Suspect]
     Active Substance: ESOMEPRAZOLE
     Indication: Product used for unknown indication
     Dosage: UNK
     Route: 065
  2. VENLAFAXINE HYDROCHLORIDE [Interacting]
     Active Substance: VENLAFAXINE HYDROCHLORIDE
     Indication: Product used for unknown indication
     Dosage: UNK
     Route: 065
  3. EZETIMIBE [Suspect]
     Active Substance: EZETIMIBE
     Indication: Product used for unknown indication
     Dosage: UNK
     Route: 065
  4. FLUOXETINE HYDROCHLORIDE [Interacting]
     Active Substance: FLUOXETINE HYDROCHLORIDE
     Indication: Product used for unknown indication
     Dosage: UNK
     Route: 065
  5. NORFLOXACIN [Suspect]
     Active Substance: NORFLOXACIN
     Indication: Product used for unknown indication
     Dosage: UNK
     Route: 065
  6. TRAMADOL HYDROCHLORIDE [Interacting]
     Active Substance: TRAMADOL HYDROCHLORIDE
     Indication: Product used for unknown indication
     Dosage: UNK
     Route: 065
  7. BUPRENORPHINE [Interacting]
     Active Substance: BUPRENORPHINE
     Indication: Product used for unknown indication
     Dosage: 35 G, QH
     Route: 062
  8. VERAPAMIL HYDROCHLORIDE [Suspect]
     Active Substance: VERAPAMIL HYDROCHLORIDE
     Indication: Product used for unknown indication
     Dosage: 120 MILLIGRAM
     Route: 065
  9. VORTIOXETINE [Suspect]
     Active Substance: VORTIOXETINE
     Indication: Product used for unknown indication
     Dosage: UNK
     Route: 065

REACTIONS (25)
  - Pyrexia [Fatal]
  - Malaise [Fatal]
  - Abdominal pain [Fatal]
  - Tachycardia [Fatal]
  - Insomnia [Fatal]
  - Arthralgia [Fatal]
  - Headache [Fatal]
  - Urinary tract disorder [Fatal]
  - Dizziness [Fatal]
  - Cough [Fatal]
  - Amaurosis fugax [Fatal]
  - Eye pain [Fatal]
  - Blindness [Fatal]
  - Asthenia [Fatal]
  - Altered state of consciousness [Fatal]
  - Fall [Fatal]
  - Somnolence [Fatal]
  - Ocular discomfort [Fatal]
  - Sepsis [Fatal]
  - Photophobia [Fatal]
  - Dyspnoea [Fatal]
  - Chills [Fatal]
  - Head discomfort [Fatal]
  - Cardio-respiratory arrest [Fatal]
  - Drug interaction [Unknown]
